FAERS Safety Report 5317893-6 (Version None)
Quarter: 2007Q2

REPORT INFORMATION
  Report Type: 
  Country: None (occurrence: None)
  Receive Date: 20070507
  Receipt Date: 20070503
  Transmission Date: 20071010
  Serious: Yes (Hospitalization)
  Sender: FDA-Public Use
  Company Number: A0647615A

PATIENT
  Age: 47 Year
  Sex: Female

DRUGS (3)
  1. WELLBUTRIN XL [Suspect]
     Indication: DEPRESSION
     Route: 048
     Dates: start: 20070301, end: 20070412
  2. ATIVAN [Concomitant]
  3. CYMBALTA [Concomitant]

REACTIONS (4)
  - AGITATION [None]
  - HOMICIDAL IDEATION [None]
  - HOSTILITY [None]
  - SUICIDAL IDEATION [None]
